FAERS Safety Report 8322942-7 (Version None)
Quarter: 2012Q2

REPORT INFORMATION
  Report Type: 
  Country: None (occurrence: None)
  Receive Date: 20120430
  Receipt Date: 20120419
  Transmission Date: 20120825
  Serious: Yes (Other)
  Sender: FDA-Public Use
  Company Number: US-ELI_LILLY_AND_COMPANY-US201204004415

PATIENT
  Sex: Female

DRUGS (1)
  1. FORTEO [Suspect]
     Indication: OSTEOPOROSIS POSTMENOPAUSAL
     Dosage: UNK, UNKNOWN
     Route: 065
     Dates: start: 20120404

REACTIONS (6)
  - INJECTION SITE ERYTHEMA [None]
  - CONTUSION [None]
  - RADIOTHERAPY [None]
  - MUSCULOSKELETAL CHEST PAIN [None]
  - SKELETAL INJURY [None]
  - FALL [None]
